FAERS Safety Report 12450806 (Version 1)
Quarter: 2016Q2

REPORT INFORMATION
  Report Type: Spontaneous
  Country: US (occurrence: US)
  Receive Date: 20160609
  Receipt Date: 20160609
  Transmission Date: 20160815
  Serious: No
  Sender: FDA-Public Use
  Company Number: US-PERRIGO-16US013677

PATIENT
  Sex: Female

DRUGS (2)
  1. PERMETHRIN. [Suspect]
     Active Substance: PERMETHRIN
     Dosage: 1/2 TUBE, SINGLE
     Route: 061
     Dates: start: 20160217, end: 20160217
  2. PERMETHRIN. [Suspect]
     Active Substance: PERMETHRIN
     Indication: ACARODERMATITIS
     Dosage: 30 GRAMS, SINGLE
     Route: 061
     Dates: start: 20160224, end: 20160224

REACTIONS (1)
  - Drug ineffective [Unknown]

NARRATIVE: CASE EVENT DATE: 20160217
